FAERS Safety Report 11736745 (Version 4)
Quarter: 2015Q4

REPORT INFORMATION
  Report Type: Spontaneous
  Country: US (occurrence: US)
  Receive Date: 20151113
  Receipt Date: 20151214
  Transmission Date: 20160304
  Serious: No
  Sender: FDA-Public Use
  Company Number: US-JNJFOC-20151006072

PATIENT
  Age: 74 Year
  Sex: Female
  Weight: 99.79 kg

DRUGS (7)
  1. IMODIUM MULTI-SYMPTOM RELIEF [Suspect]
     Active Substance: DIMETHICONE\LOPERAMIDE HYDROCHLORIDE
     Route: 048
  2. IMODIUM A-D [Suspect]
     Active Substance: LOPERAMIDE HYDROCHLORIDE
     Route: 048
  3. POTASSIUM [Concomitant]
     Active Substance: POTASSIUM
     Indication: NUTRITIONAL SUPPLEMENTATION
     Route: 065
  4. IMODIUM A-D [Suspect]
     Active Substance: LOPERAMIDE HYDROCHLORIDE
     Indication: DIARRHOEA
     Dosage: 1 CAPFUL, AS NEEDED
     Route: 048
  5. FOLIC ACID. [Concomitant]
     Active Substance: FOLIC ACID
     Indication: NUTRITIONAL SUPPLEMENTATION
     Route: 065
  6. DIPHENHYDRAMINE. [Suspect]
     Active Substance: DIPHENHYDRAMINE
     Indication: HYPERSENSITIVITY
     Dosage: 4 TEA SPOON.
     Route: 065
  7. IMODIUM MULTI-SYMPTOM RELIEF [Suspect]
     Active Substance: DIMETHICONE\LOPERAMIDE HYDROCHLORIDE
     Indication: DIARRHOEA
     Route: 048

REACTIONS (2)
  - Dysphagia [Not Recovered/Not Resolved]
  - Product size issue [Unknown]
